FAERS Safety Report 7649714-0 (Version None)
Quarter: 2011Q3

REPORT INFORMATION
  Report Type: 
  Country: None (occurrence: None)
  Receive Date: 20110727
  Receipt Date: 20110713
  Transmission Date: 20111222
  Serious: Yes (Hospitalization)
  Sender: FDA-Public Use
  Company Number: UTC-007882

PATIENT
  Age: 14 Year
  Sex: Female

DRUGS (5)
  1. OXYGEN (OXYGEN) [Concomitant]
  2. ASPIRIN [Concomitant]
  3. TYVASO [Suspect]
     Indication: PULMONARY HYPERTENSION
     Dosage: 108 MCG (36 MCG,3 IN 1 D),INHALATION
     Route: 055
     Dates: start: 20100401
  4. DIGOXIN [Concomitant]
  5. ADCIRCA (TADALAFAIL) [Concomitant]

REACTIONS (1)
  - MUSCULOSKELETAL CHEST PAIN [None]
